FAERS Safety Report 8349092-8 (Version None)
Quarter: 2012Q2

REPORT INFORMATION
  Report Type: 
  Country: None (occurrence: None)
  Receive Date: 20120510
  Receipt Date: 20120428
  Transmission Date: 20120825
  Serious: Yes (Other)
  Sender: FDA-Public Use
  Company Number: FR-ELI_LILLY_AND_COMPANY-FR201205000425

PATIENT
  Age: 82 Year
  Sex: Female

DRUGS (1)
  1. FORTEO [Suspect]
     Dosage: 20 UG, UNK
     Route: 058

REACTIONS (3)
  - JAW DISORDER [None]
  - THROMBOPHLEBITIS [None]
  - PAIN [None]
